FAERS Safety Report 20549142 (Version 1)
Quarter: 2022Q1

REPORT INFORMATION
  Report Type: Spontaneous
  Country: US (occurrence: US)
  Receive Date: 20220303
  Receipt Date: 20220303
  Transmission Date: 20220424
  Serious: Yes (Other)
  Sender: FDA-Public Use
  Company Number: US-JNJFOC-20211118443

PATIENT
  Age: 5 Year
  Sex: Male
  Weight: 27.240 kg

DRUGS (2)
  1. RISPERDAL [Suspect]
     Active Substance: RISPERIDONE
     Indication: Product used for unknown indication
     Route: 048
  2. RISPERDAL [Suspect]
     Active Substance: RISPERIDONE
     Indication: Disturbance in social behaviour
     Route: 048

REACTIONS (2)
  - Abnormal weight gain [Unknown]
  - Increased appetite [Unknown]

NARRATIVE: CASE EVENT DATE: 20100501
